FAERS Safety Report 13832081 (Version 1)
Quarter: 2017Q3

REPORT INFORMATION
  Report Type: Spontaneous
  Country: US (occurrence: US)
  Receive Date: 20170803
  Receipt Date: 20170803
  Transmission Date: 20171127
  Serious: Yes (Other)
  Sender: FDA-Public Use
  Company Number: US-ROCHE-637482

PATIENT
  Age: 60 Year
  Sex: Female

DRUGS (6)
  1. KLONOPIN [Concomitant]
     Active Substance: CLONAZEPAM
     Route: 065
  2. ACETAMINOPHEN W CAFFEINE [Concomitant]
     Active Substance: ACETAMINOPHEN\CAFFEINE
     Route: 065
  3. ANASTROZOL [Concomitant]
     Active Substance: ANASTROZOLE
     Route: 065
  4. CYMBALTA [Concomitant]
     Active Substance: DULOXETINE HYDROCHLORIDE
     Route: 065
  5. BONIVA [Suspect]
     Active Substance: IBANDRONATE SODIUM
     Indication: BREAST CANCER
     Route: 048
     Dates: start: 20070326, end: 20090323
  6. CELEBREX [Concomitant]
     Active Substance: CELECOXIB
     Route: 065

REACTIONS (5)
  - Haematochezia [Unknown]
  - Corrective lens user [Unknown]
  - Breast calcifications [Unknown]
  - Endodontic procedure [Unknown]
  - Osteonecrosis of jaw [Recovered/Resolved]
